FAERS Safety Report 15372011 (Version 1)
Quarter: 2018Q3

REPORT INFORMATION
  Report Type: Spontaneous
  Country: US (occurrence: US)
  Receive Date: 20180911
  Receipt Date: 20180911
  Transmission Date: 20181010
  Serious: Yes (Other)
  Sender: FDA-Public Use
  Company Number: US-GLAXOSMITHKLINE-US2018GSK164986

PATIENT

DRUGS (3)
  1. RYTHMOL SR [Concomitant]
     Active Substance: PROPAFENONE HYDROCHLORIDE
     Dosage: 325 MG, UNK
     Dates: start: 2003
  2. RYTHMOL SR [Concomitant]
     Active Substance: PROPAFENONE HYDROCHLORIDE
     Dosage: 425 MG, UNK
  3. PROPAFENONE HYDROCHLORIDE SR [Suspect]
     Active Substance: PROPAFENONE HYDROCHLORIDE

REACTIONS (4)
  - Drug ineffective [Unknown]
  - Therapeutic response changed [Unknown]
  - Atrial fibrillation [Unknown]
  - Product substitution issue [Unknown]
